FAERS Safety Report 19665236 (Version 2)
Quarter: 2021Q3

REPORT INFORMATION
  Report Type: Spontaneous
  Country: US (occurrence: US)
  Receive Date: 20210805
  Receipt Date: 20210805
  Transmission Date: 20211014
  Serious: No
  Sender: FDA-Public Use
  Company Number: US-ROCHE-2811985

PATIENT
  Age: 66 Year
  Sex: Male

DRUGS (1)
  1. GAVRETO [Suspect]
     Active Substance: PRALSETINIB
     Indication: LUNG NEOPLASM MALIGNANT
     Dosage: 2 CAPSULES (200 MG TOTAL) BY MOUTH DAILY ON AN EMPTY STOMACH 1 HOUR BEFORE OR 2 HOURS AFTER FOOD
     Route: 048
     Dates: start: 20201110

REACTIONS (2)
  - Haemoglobin decreased [Not Recovered/Not Resolved]
  - Haemoglobin increased [Not Recovered/Not Resolved]

NARRATIVE: CASE EVENT DATE: 20201111
